FAERS Safety Report 7968208 (Version 6)
Quarter: 2013Q2

REPORT INFORMATION
  Report Type: Report from Study
  Country: US (occurrence: US)
  Receive Date: 20110601
  Receipt Date: 20130628
  Transmission Date: 20140414
  Serious: Yes (Hospitalization)
  Sender: FDA-Public Use
  Company Number: US-JNJFOC-20110510222

PATIENT
  Age: 13 Year
  Sex: Female
  Weight: 41.1 kg

DRUGS (17)
  1. REMICADE [Suspect]
     Indication: COLITIS ULCERATIVE
     Route: 042
     Dates: start: 20110510
  2. REMICADE [Suspect]
     Indication: COLITIS ULCERATIVE
     Route: 042
     Dates: start: 20090519
  3. 5-ASA [Suspect]
     Indication: COLITIS ULCERATIVE
     Route: 048
  4. ANTIBIOTICS [Suspect]
     Indication: INFLAMMATORY BOWEL DISEASE
  5. PROBIOTICS [Concomitant]
  6. IRON [Concomitant]
  7. SINGULAIR [Concomitant]
  8. MULTIVITAMINS [Concomitant]
  9. VITAMIN D [Concomitant]
  10. SUDAFED NOS [Concomitant]
  11. GAS X [Concomitant]
  12. FLUTICASONE [Concomitant]
     Route: 055
  13. TYLENOL [Concomitant]
  14. BENADRYL [Concomitant]
  15. PREVACID [Concomitant]
  16. PREDNISONE [Concomitant]
  17. LACTAID [Concomitant]

REACTIONS (3)
  - Dehydration [Recovered/Resolved]
  - Hyponatraemia [Recovered/Resolved]
  - Clostridium difficile infection [Recovered/Resolved]
